FAERS Safety Report 4470094-6 (Version None)
Quarter: 2004Q3

REPORT INFORMATION
  Report Type: 
  Country: None (occurrence: None)
  Receive Date: 20040910
  Receipt Date: 20040728
  Transmission Date: 20050211
  Serious: No
  Sender: FDA-Public Use
  Company Number: 2004222475US

PATIENT
  Age: 53 Year
  Sex: Female
  Weight: 47.2 kg

DRUGS (5)
  1. BEXTRA [Suspect]
     Indication: MYALGIA
     Dosage: 20 MG, QD
     Dates: start: 20050630
  2. BUPROPION (AMFEBUTAMONE) [Concomitant]
  3. MULTIVITAMINS (ERGOCALCIFEROL, RETIONAL, PANTHENOL) [Concomitant]
  4. GLUCOSAMIDE W/CHONDROITIN SULFATES (MANGANESE) [Concomitant]
  5. CALCIUM [Concomitant]

REACTIONS (2)
  - DRUG INEFFECTIVE [None]
  - SCIATICA [None]
